FAERS Safety Report 22755931 (Version 3)
Quarter: 2023Q4

REPORT INFORMATION
  Report Type: Spontaneous
  Country: US (occurrence: US)
  Receive Date: 20230727
  Receipt Date: 20231114
  Transmission Date: 20240110
  Serious: No
  Sender: FDA-Public Use
  Company Number: US-VERTEX PHARMACEUTICALS-2023-010576

PATIENT
  Age: 34 Year

DRUGS (2)
  1. TRIKAFTA [Suspect]
     Active Substance: ELEXACAFTOR\IVACAFTOR\TEZACAFTOR
     Indication: Cystic fibrosis
     Dosage: UNK FREQ
     Route: 048
     Dates: start: 2019
  2. TRIKAFTA [Suspect]
     Active Substance: ELEXACAFTOR\IVACAFTOR\TEZACAFTOR
     Dosage: BLUE TAB IN AM AND ORANGE TABS IN PM
     Route: 048

REACTIONS (4)
  - Somnolence [Unknown]
  - Insomnia [Recovering/Resolving]
  - Abdominal distension [Not Recovered/Not Resolved]
  - Depression [Recovering/Resolving]
